FAERS Safety Report 7243396-8 (Version None)
Quarter: 2011Q1

REPORT INFORMATION
  Report Type: 
  Country: None (occurrence: None)
  Receive Date: 20110114
  Receipt Date: 20110110
  Transmission Date: 20110831
  Serious: Yes (Hospitalization)
  Sender: FDA-Public Use
  Company Number: CIP11000044

PATIENT
  Age: 80 Year
  Sex: Female

DRUGS (4)
  1. ASACOL [Suspect]
     Indication: COLITIS
     Dosage: 1200 MG, THREE TIMES DAILY, ORAL
     Route: 048
     Dates: start: 20101101, end: 20110103
  2. BENAZEPRIL HYDROCHLORIDE [Concomitant]
  3. ERGOCALCIFEROL [Concomitant]
  4. VITAMIN C /00008001/ (ASCORBIC ACID) [Concomitant]

REACTIONS (5)
  - VIRAL INFECTION [None]
  - DIARRHOEA [None]
  - TREMOR [None]
  - DRUG HYPERSENSITIVITY [None]
  - HEART RATE IRREGULAR [None]
